FAERS Safety Report 4467615-6 (Version None)
Quarter: 2004Q4

REPORT INFORMATION
  Report Type: 
  Country: None (occurrence: None)
  Receive Date: 20041004
  Receipt Date: 20040614
  Transmission Date: 20050328
  Serious: Yes (Hospitalization, Other)
  Sender: FDA-Public Use
  Company Number: ATO-04-0541

PATIENT
  Age: 56 Year
  Sex: Female
  Weight: 62.5964 kg

DRUGS (7)
  1. TRISENOX [Suspect]
     Indication: MULTIPLE MYELOMA
     Dosage: 4 CYCLES TO DATE (17.5 MG, TWICE WEEKLY), IVI
     Dates: end: 20040527
  2. MELPHALAN [Suspect]
     Indication: MULTIPLE MYELOMA
     Dosage: 17 MG (17 MG, X 4 DAYS Q 42 DAYS), ORAL
     Route: 048
  3. AREDIA [Concomitant]
  4. ATIVAN [Concomitant]
  5. CIPROFLOXACIN [Concomitant]
  6. KLOR-CON [Concomitant]
  7. NORCO [Concomitant]

REACTIONS (11)
  - DECREASED APPETITE [None]
  - DEHYDRATION [None]
  - DERMATITIS CONTACT [None]
  - HYPOCALCAEMIA [None]
  - HYPOKALAEMIA [None]
  - HYPONATRAEMIA [None]
  - ORAL PAIN [None]
  - PANCYTOPENIA [None]
  - POLLAKIURIA [None]
  - SKIN LESION [None]
  - URINARY INCONTINENCE [None]
